FAERS Safety Report 9840279 (Version 2)
Quarter: 2014Q1

REPORT INFORMATION
  Report Type: Spontaneous
  Country: US (occurrence: US)
  Receive Date: 20140124
  Receipt Date: 20140124
  Transmission Date: 20141002
  Serious: Yes (Hospitalization)
  Sender: FDA-Public Use
  Company Number: US-SA-FABR-1003447

PATIENT
  Age: 54 Year
  Sex: Male
  Weight: 46.72 kg

DRUGS (2)
  1. FABRAZYME [Suspect]
     Indication: FABRY^S DISEASE
     Dosage: 1.07 MG/KG, Q2W
     Route: 042
     Dates: start: 20111221
  2. LISINOPRIL [Suspect]
     Indication: PRODUCT USED FOR UNKNOWN INDICATION
     Dosage: UNK
     Route: 065
     Dates: start: 20130306, end: 20130424

REACTIONS (6)
  - Blister infected [Unknown]
  - Infection [Unknown]
  - Blister [Unknown]
  - Weight decreased [Unknown]
  - Diarrhoea [Recovered/Resolved]
  - Hypotension [Unknown]
